FAERS Safety Report 9144022 (Version 1)
Quarter: 2013Q1

REPORT INFORMATION
  Report Type: Spontaneous
  Country: US (occurrence: US)
  Receive Date: 20130306
  Receipt Date: 20130306
  Transmission Date: 20140127
  Serious: Yes (Hospitalization)
  Sender: FDA-Public Use
  Company Number: US-GLAXOSMITHKLINE-A0770972A

PATIENT
  Age: 65 Year
  Sex: Male

DRUGS (1)
  1. AVANDIA [Suspect]
     Indication: TYPE 2 DIABETES MELLITUS
     Dosage: 4MG TWICE PER DAY
     Route: 048
     Dates: start: 20030308, end: 20060305

REACTIONS (7)
  - Myocardial infarction [Unknown]
  - Atrial fibrillation [Unknown]
  - Respiratory failure [Unknown]
  - Coronary artery bypass [Unknown]
  - Cardiac disorder [Unknown]
  - Pleural effusion [Unknown]
  - Atrial flutter [Unknown]
